FAERS Safety Report 5513116-3 (Version None)
Quarter: 2007Q4

REPORT INFORMATION
  Report Type: 
  Country: None (occurrence: None)
  Receive Date: 20071112
  Receipt Date: 20071101
  Transmission Date: 20080405
  Serious: Yes (Life-Threatening, Hospitalization)
  Sender: FDA-Public Use
  Company Number: FR-ROCHE-529076

PATIENT
  Age: 39 Year
  Sex: Male
  Weight: 58 kg

DRUGS (9)
  1. PEG-INTERFERON ALFA 2A (RO 25-8310) [Suspect]
     Indication: HEPATITIS C
     Route: 058
     Dates: start: 20070226, end: 20070822
  2. PEG-INTERFERON ALFA 2A (RO 25-8310) [Suspect]
     Route: 058
     Dates: start: 20070212, end: 20070226
  3. PEG-INTERFERON ALFA 2A (RO 25-8310) [Suspect]
     Route: 058
     Dates: start: 20061204, end: 20070212
  4. RIBAVIRIN [Suspect]
     Indication: HEPATITIS C
     Route: 048
     Dates: start: 20061204, end: 20070822
  5. PLACEBO [Suspect]
     Indication: HEPATITIS C
     Route: 048
     Dates: start: 20061204, end: 20070226
  6. PARACETAMOL [Concomitant]
     Route: 048
     Dates: start: 20061204, end: 20061204
  7. DEROXAT [Concomitant]
     Route: 048
     Dates: start: 20070212, end: 20070313
  8. LOCOID [Concomitant]
     Indication: ECZEMA
     Route: 061
     Dates: start: 20070315, end: 20070427
  9. TRIMEPRAZINE TAB [Concomitant]
     Indication: SLEEP DISORDER
     Route: 048
     Dates: start: 20070822

REACTIONS (1)
  - PARANOIA [None]
